FAERS Safety Report 24729818 (Version 3)
Quarter: 2024Q4

REPORT INFORMATION
  Report Type: Spontaneous
  Country: CO (occurrence: CO)
  Receive Date: 20241213
  Receipt Date: 20241223
  Transmission Date: 20250114
  Serious: Yes (Hospitalization, Other)
  Sender: KYOWA
  Company Number: CO-KYOWAKIRIN-2024KK028054

PATIENT

DRUGS (1)
  1. CRYSVITA [Suspect]
     Active Substance: BUROSUMAB-TWZA
     Indication: Phosphorus metabolism disorder
     Dosage: 30 MILLIGRAM
     Route: 065

REACTIONS (2)
  - Lower limb fracture [Unknown]
  - Fracture infection [Unknown]

NARRATIVE: CASE EVENT DATE: 20241201
